FAERS Safety Report 4357623-8 (Version None)
Quarter: 2004Q2

REPORT INFORMATION
  Report Type: 
  Country: None (occurrence: None)
  Receive Date: 20040510
  Receipt Date: 20040426
  Transmission Date: 20050107
  Serious: Yes (Other)
  Sender: FDA-Public Use
  Company Number: 200401443

PATIENT
  Age: 77 Year
  Sex: Female

DRUGS (4)
  1. RESTASIS [Suspect]
     Indication: KERATOCONJUNCTIVITIS SICCA
     Dosage: 2 DROP BID EYE
     Dates: start: 20031202, end: 20040106
  2. REFRESH PLUS (UNIVERSAL) [Concomitant]
  3. REFRESH PM [Concomitant]
  4. OCUVITE [Concomitant]

REACTIONS (9)
  - ACTIVITIES OF DAILY LIVING IMPAIRED [None]
  - CONJUNCTIVAL SCAR [None]
  - CONJUNCTIVITIS [None]
  - ENTROPION [None]
  - IMPAIRED DRIVING ABILITY [None]
  - MUCOUS MEMBRANE DISORDER [None]
  - PEMPHIGOID [None]
  - TRICHIASIS [None]
  - VISUAL ACUITY REDUCED [None]
